FAERS Safety Report 13338268 (Version 1)
Quarter: 2017Q1

REPORT INFORMATION
  Report Type: Other
  Country: US (occurrence: US)
  Receive Date: 20170315
  Receipt Date: 20170315
  Transmission Date: 20170428
  Serious: Yes (Other)
  Sender: FDA-Public Use
  Company Number: US-SHIRE-US201704528

PATIENT
  Age: 66 Year
  Sex: Female
  Weight: 59.86 kg

DRUGS (1)
  1. XIIDRA [Suspect]
     Active Substance: LIFITEGRAST
     Indication: DRY EYE
     Dosage: 1 GTT, 2X/DAY:BID IN BOTH EYES
     Route: 047
     Dates: start: 20170220, end: 20170221

REACTIONS (12)
  - Instillation site pain [Recovered/Resolved]
  - Ocular discomfort [Recovered/Resolved]
  - Photophobia [Not Recovered/Not Resolved]
  - Ageusia [Recovered/Resolved]
  - Eye inflammation [Not Recovered/Not Resolved]
  - Activities of daily living impaired [Unknown]
  - Vision blurred [Recovered/Resolved]
  - Instillation site pruritus [Recovered/Resolved]
  - Instillation site lacrimation [Recovered/Resolved]
  - Visual acuity reduced [Not Recovered/Not Resolved]
  - Drug hypersensitivity [Not Recovered/Not Resolved]
  - Headache [Not Recovered/Not Resolved]

NARRATIVE: CASE EVENT DATE: 201702
